FAERS Safety Report 9203807 (Version 2)
Quarter: 2013Q2

REPORT INFORMATION
  Report Type: Spontaneous
  Country: US (occurrence: US)
  Receive Date: 20130402
  Receipt Date: 20130621
  Transmission Date: 20140414
  Serious: Yes (Other)
  Sender: FDA-Public Use
  Company Number: US-PFIZER INC-2013103128

PATIENT
  Age: 60 Year
  Sex: Female
  Weight: 102 kg

DRUGS (12)
  1. LYRICA [Suspect]
     Indication: FIBROMYALGIA
     Dosage: 50 MG, 3X/DAY (1 TAB AM, 2 TABS PM)
     Route: 048
     Dates: start: 2011, end: 201303
  2. TRAMADOL [Concomitant]
     Dosage: 50 MG - 2 TABS THREE TIMES DAILY
     Route: 048
  3. METFORMIN [Concomitant]
     Dosage: 500 MG, 2X/DAY
  4. SYNTHROID [Concomitant]
     Dosage: 75 UG, 1X/DAY
  5. XANAX [Concomitant]
     Dosage: AS NEEDED
  6. VITAMIN D [Concomitant]
     Dosage: UNK
  7. IRON [Concomitant]
     Dosage: UNK
  8. LIPITOR [Concomitant]
     Dosage: 80 MG, 1X/DAY (80 MG QD)
  9. LISINOPRIL [Concomitant]
     Dosage: 40 MG, 1X/DAY
  10. PREVACID [Concomitant]
     Dosage: 30 ONCE DAILY
  11. CYMBALTA [Concomitant]
     Dosage: 60 MG, 1X/DAY
  12. ADVAIR DISKUS [Concomitant]
     Dosage: UNK

REACTIONS (5)
  - Hyperthyroidism [Unknown]
  - Vitamin D decreased [Unknown]
  - Malaise [Unknown]
  - Sinusitis [Unknown]
  - Hypersensitivity [Unknown]
